FAERS Safety Report 17962035 (Version 1)
Quarter: 2020Q2

REPORT INFORMATION
  Report Type: Spontaneous
  Country: US (occurrence: US)
  Receive Date: 20200630
  Receipt Date: 20200630
  Transmission Date: 20200714
  Serious: No
  Sender: FDA-Public Use
  Company Number: US-PFIZER INC-2018352366

PATIENT
  Age: 62 Year
  Sex: Female

DRUGS (7)
  1. LYRICA [Suspect]
     Active Substance: PREGABALIN
     Indication: VERTEBRAL FORAMINAL STENOSIS
  2. LYRICA [Suspect]
     Active Substance: PREGABALIN
     Indication: STENOSIS
  3. LYRICA [Suspect]
     Active Substance: PREGABALIN
     Indication: OEDEMA
  4. LYRICA [Suspect]
     Active Substance: PREGABALIN
     Indication: SPINAL OSTEOARTHRITIS
  5. LYRICA [Suspect]
     Active Substance: PREGABALIN
     Indication: INTERVERTEBRAL DISC DEGENERATION
     Dosage: 75 MG, UNK
  6. LYRICA [Suspect]
     Active Substance: PREGABALIN
     Indication: GROIN PAIN
     Dosage: 100 MG, 1X/DAY
  7. LYRICA [Suspect]
     Active Substance: PREGABALIN
     Indication: GROIN PAIN

REACTIONS (1)
  - Post-traumatic stress disorder [Unknown]
